FAERS Safety Report 4641685-4 (Version None)
Quarter: 2005Q2

REPORT INFORMATION
  Report Type: 
  Country: None (occurrence: None)
  Receive Date: 20050420
  Receipt Date: 20050405
  Transmission Date: 20051028
  Serious: Yes (Congenital Anomaly)
  Sender: FDA-Public Use
  Company Number: B0377737A

PATIENT
  Sex: 0

DRUGS (2)
  1. TAGAMET [Suspect]
     Dosage: TRANSPLACENTARY
  2. NASAL (UNSPECIFIED) (FORMULATION UNKNOWN) (NASAL (UNSPECIFIED) ) [Suspect]
     Dosage: TRANSPLACENTARY

REACTIONS (2)
  - CATARACT CONGENITAL [None]
  - DRUG EXPOSURE DURING PREGNANCY [None]
